FAERS Safety Report 17762832 (Version 1)
Quarter: 2020Q2

REPORT INFORMATION
  Report Type: Spontaneous
  Country: US (occurrence: US)
  Receive Date: 20200508
  Receipt Date: 20200508
  Transmission Date: 20200714
  Serious: Yes (Other)
  Sender: FDA-Public Use
  Company Number: US-MYLANLABS-2020M1045064

PATIENT
  Sex: Male

DRUGS (2)
  1. SILDENAFIL TABLETS USP [Suspect]
     Active Substance: SILDENAFIL
     Indication: ERECTILE DYSFUNCTION
  2. SILDENAFIL TABLETS USP [Suspect]
     Active Substance: SILDENAFIL
     Indication: BLOOD TESTOSTERONE DECREASED
     Dosage: 1-2 TAB AS NEEDED
     Route: 048

REACTIONS (2)
  - Extra dose administered [Not Recovered/Not Resolved]
  - Drug ineffective [Not Recovered/Not Resolved]
